FAERS Safety Report 6527006-0 (Version None)
Quarter: 2009Q4

REPORT INFORMATION
  Report Type: 
  Country: None (occurrence: None)
  Receive Date: 20091222
  Receipt Date: 20090227
  Transmission Date: 20100525
  Serious: No
  Sender: FDA-Public Use
  Company Number: 203336

PATIENT
  Sex: Male

DRUGS (2)
  1. DEMEROL [Suspect]
     Indication: PAIN
     Dosage: 25 MG, ONCE, INTRAVENOUS
     Route: 042
     Dates: start: 20090227, end: 20090227
  2. (ALL OTHER THERAPEUTIC PRODUCTS) [Concomitant]

REACTIONS (1)
  - INJECTION SITE STREAKING [None]
